FAERS Safety Report 23822811 (Version 1)
Quarter: 2024Q2

REPORT INFORMATION
  Report Type: Report from Study
  Country: US (occurrence: US)
  Receive Date: 20240506
  Receipt Date: 20240506
  Transmission Date: 20240716
  Serious: Yes (Other)
  Sender: FDA-Public Use
  Company Number: US-ABBVIE-5738381

PATIENT
  Sex: Female

DRUGS (1)
  1. HUMIRA [Suspect]
     Active Substance: ADALIMUMAB
     Indication: Product used for unknown indication
     Dosage: FORM STRENGTH UNITS: 40 MILLIGRAM
     Route: 058
     Dates: start: 20230914

REACTIONS (2)
  - Spinal nerve stimulator implantation [Unknown]
  - Liver function test abnormal [Unknown]
